FAERS Safety Report 11691082 (Version 2)
Quarter: 2015Q4

REPORT INFORMATION
  Report Type: Spontaneous
  Country: GB (occurrence: GB)
  Receive Date: 20151102
  Receipt Date: 20151111
  Transmission Date: 20160304
  Serious: Yes (Death, Other)
  Sender: FDA-Public Use
  Company Number: GB-PIERRE FABRE-1043639

PATIENT
  Age: 43 Year
  Sex: Female
  Weight: 53 kg

DRUGS (10)
  1. SENOKOT [Concomitant]
     Active Substance: SENNOSIDES
  2. BUSCOPAN (HYOSCINE BUTYLBROMIDE) [Concomitant]
     Route: 065
  3. IBANDRONATE SODIUM. [Concomitant]
     Active Substance: IBANDRONATE SODIUM
     Route: 048
  4. NAVELBINE [Suspect]
     Active Substance: VINORELBINE TARTRATE
     Indication: BREAST CANCER FEMALE
     Route: 048
     Dates: start: 20150312
  5. ACETAMINOPHEN. [Concomitant]
     Active Substance: ACETAMINOPHEN
     Route: 065
  6. DOMPERIDONE [Concomitant]
     Active Substance: DOMPERIDONE
     Route: 065
  7. OMEPRAZOLE. [Concomitant]
     Active Substance: OMEPRAZOLE
     Route: 065
  8. BENDROFLUMETHIAZIDE [Concomitant]
     Active Substance: BENDROFLUMETHIAZIDE
     Route: 065
  9. METOCLOPRAMIDE HYDROCHLORIDE. [Concomitant]
     Active Substance: METOCLOPRAMIDE HYDROCHLORIDE
     Route: 065
  10. DEXAMETHASONE. [Concomitant]
     Active Substance: DEXAMETHASONE
     Route: 065

REACTIONS (8)
  - Vomiting [Unknown]
  - Nausea [Unknown]
  - Malignant neoplasm progression [Unknown]
  - Faecaloma [Unknown]
  - Ascites [Fatal]
  - Death [Fatal]
  - Dyspepsia [Unknown]
  - Abdominal distension [Unknown]

NARRATIVE: CASE EVENT DATE: 20150619
